FAERS Safety Report 4523551-8 (Version None)
Quarter: 2004Q4

REPORT INFORMATION
  Report Type: 
  Country: None (occurrence: None)
  Receive Date: 20041209
  Receipt Date: 20041209
  Transmission Date: 20050328
  Serious: No
  Sender: FDA-Public Use
  Company Number: None

PATIENT
  Sex: Female

DRUGS (2)
  1. NEURONTIN [Suspect]
     Indication: CONVULSION
     Dosage: 400 MG T.I.D
  2. VALIUM [Suspect]
     Indication: CONVULSION
     Dosage: 5 MG T.I.D.

REACTIONS (13)
  - CONTUSION [None]
  - CONVULSION [None]
  - DYSKINESIA [None]
  - ELECTROENCEPHALOGRAM ABNORMAL [None]
  - EYE ROLLING [None]
  - FALL [None]
  - LIMB INJURY [None]
  - MENTAL RETARDATION SEVERITY UNSPECIFIED [None]
  - MOVEMENT DISORDER [None]
  - MUSCLE TWITCHING [None]
  - PHARMACEUTICAL PRODUCT COMPLAINT [None]
  - TREMOR [None]
  - URINARY TRACT INFECTION [None]
